FAERS Safety Report 17521013 (Version 1)
Quarter: 2020Q1

REPORT INFORMATION
  Report Type: Spontaneous
  Country: GB (occurrence: GB)
  Receive Date: 20200309
  Receipt Date: 20200309
  Transmission Date: 20200409
  Serious: Yes (Other)
  Sender: FDA-Public Use
  Company Number: GB-TEVA-2020-GB-1196109

PATIENT
  Age: 21 Year
  Sex: Female
  Weight: 56.8 kg

DRUGS (1)
  1. TRIMETHOPRIM. [Suspect]
     Active Substance: TRIMETHOPRIM
     Indication: ACNE
     Dosage: UNSURE - STARTED IN SECONDARY CARE (DERMATOLOGY)
     Route: 048
     Dates: start: 20200114, end: 20200115

REACTIONS (3)
  - Periorbital swelling [Unknown]
  - Skin tightness [Unknown]
  - Rash erythematous [Unknown]

NARRATIVE: CASE EVENT DATE: 20200114
